FAERS Safety Report 14941455 (Version 1)
Quarter: 2018Q2

REPORT INFORMATION
  Report Type: Report from Study
  Country: US (occurrence: US)
  Receive Date: 20180526
  Receipt Date: 20180526
  Transmission Date: 20180711
  Serious: Yes (Other)
  Sender: FDA-Public Use
  Company Number: US-TEVA-2018-US-895454

PATIENT
  Sex: Female

DRUGS (3)
  1. COPAXONE [Suspect]
     Active Substance: GLATIRAMER ACETATE
     Route: 058
     Dates: start: 20140918
  2. PREDNISONE. [Concomitant]
     Active Substance: PREDNISONE
  3. EPINEPHRINE. [Concomitant]
     Active Substance: EPINEPHRINE

REACTIONS (3)
  - Fatigue [Not Recovered/Not Resolved]
  - Anaphylactic reaction [Not Recovered/Not Resolved]
  - Asthenia [Not Recovered/Not Resolved]
